FAERS Safety Report 15547041 (Version 1)
Quarter: 2018Q4

REPORT INFORMATION
  Report Type: Spontaneous
  Country: US (occurrence: US)
  Receive Date: 20181024
  Receipt Date: 20181024
  Transmission Date: 20190205
  Serious: No
  Sender: FDA-Public Use
  Company Number: US-HORIZON-PEN-1128-2018

PATIENT
  Age: 53 Year
  Sex: Female

DRUGS (1)
  1. PENNSAID [Suspect]
     Active Substance: DICLOFENAC SODIUM
     Indication: PRODUCT USED FOR UNKNOWN INDICATION
     Dosage: 1 PUMP TWICE A DAY
     Route: 061
     Dates: start: 20181009

REACTIONS (3)
  - Off label use [Unknown]
  - Burning sensation [Unknown]
  - Rash pruritic [Unknown]

NARRATIVE: CASE EVENT DATE: 20181009
